FAERS Safety Report 17185920 (Version 3)
Quarter: 2020Q4

REPORT INFORMATION
  Report Type: Report from Study
  Country: None (occurrence: AU)
  Receive Date: 20191220
  Receipt Date: 20201209
  Transmission Date: 20210113
  Serious: Yes (Hospitalization, Other)
  Sender: FDA-Public Use
  Company Number: AU-ABBVIE-19K-008-3200824-00

PATIENT
  Age: 80 Year
  Sex: Male
  Weight: 54.9 kg

DRUGS (2)
  1. IBRUTINIB [Suspect]
     Active Substance: IBRUTINIB
     Indication: CHRONIC LYMPHOCYTIC LEUKAEMIA
     Route: 048
     Dates: start: 20180101
  2. PREDNISONE. [Concomitant]
     Active Substance: PREDNISONE
     Indication: PRODUCT USED FOR UNKNOWN INDICATION

REACTIONS (6)
  - Non-Hodgkin^s lymphoma [Unknown]
  - Fatigue [Not Recovered/Not Resolved]
  - Osteoporosis [Unknown]
  - Hospitalisation [Not Recovered/Not Resolved]
  - Dyspnoea exertional [Unknown]
  - Adverse event [Unknown]

NARRATIVE: CASE EVENT DATE: 20191216
